FAERS Safety Report 7301154-X (Version None)
Quarter: 2011Q1

REPORT INFORMATION
  Report Type: 
  Country: None (occurrence: None)
  Receive Date: 20110218
  Receipt Date: 20101228
  Transmission Date: 20110831
  Serious: Yes (Other)
  Sender: FDA-Public Use
  Company Number: US-BAYER-201036942NA

PATIENT
  Sex: Female
  Weight: 54.422 kg

DRUGS (7)
  1. YASMIN [Suspect]
     Indication: PREMENSTRUAL SYNDROME
  2. NAPROXEN [Concomitant]
     Dosage: UNK
     Dates: start: 19990101, end: 20010101
  3. ASCORBIC ACID [Concomitant]
  4. ANTIBIOTICS [Concomitant]
  5. YASMIN [Suspect]
     Indication: ORAL CONTRACEPTION
     Dosage: UNK
     Route: 048
     Dates: start: 20040628, end: 20041001
  6. UNCODEABLE ^UNCLASSIFIABLE^ [Concomitant]
  7. TOPROL-XL [Concomitant]
     Dosage: UNK
     Dates: start: 20041101

REACTIONS (4)
  - CHOLECYSTITIS CHRONIC [None]
  - CHOLELITHIASIS [None]
  - WEIGHT DECREASED [None]
  - GALLBLADDER DISORDER [None]
